FAERS Safety Report 7948193-3 (Version None)
Quarter: 2011Q4

REPORT INFORMATION
  Report Type: 
  Country: None (occurrence: None)
  Receive Date: 20111130
  Receipt Date: 20111123
  Transmission Date: 20120403
  Serious: Yes (Hospitalization)
  Sender: FDA-Public Use
  Company Number: IE-UCBSA-046422

PATIENT
  Sex: Female

DRUGS (1)
  1. CIMZIA [Suspect]
     Dosage: FIRST DOSE
     Route: 058
     Dates: start: 20110901

REACTIONS (1)
  - HAEMOGLOBIN DECREASED [None]
